FAERS Safety Report 9626867 (Version 2)
Quarter: 2013Q4

REPORT INFORMATION
  Report Type: Spontaneous
  Country: US (occurrence: US)
  Receive Date: 20131016
  Receipt Date: 20131111
  Transmission Date: 20140711
  Serious: Yes (Hospitalization, Other)
  Sender: FDA-Public Use
  Company Number: US-SA-2013SA101455

PATIENT
  Age: 48 Year
  Sex: Female

DRUGS (10)
  1. ALEMTUZUMAB [Suspect]
     Indication: IMMUNOSUPPRESSION
     Route: 065
  2. MYCOPHENOLATE MOFETIL [Concomitant]
     Indication: IMMUNOSUPPRESSION
     Route: 065
  3. TACROLIMUS [Concomitant]
     Indication: IMMUNOSUPPRESSION
  4. PREDNISONE [Concomitant]
     Indication: IMMUNOSUPPRESSION
  5. PREDNISONE [Concomitant]
     Indication: LUPUS NEPHRITIS
  6. PREDNISONE [Concomitant]
     Indication: IMMUNOSUPPRESSION
     Dosage: MAINTAINANCE THERAPY AS AN IMMUNOSUPRESSANT
  7. PREDNISONE [Concomitant]
     Indication: LUPUS NEPHRITIS
     Dosage: MAINTAINANCE THERAPY AS AN IMMUNOSUPRESSANT
  8. VALGANCICLOVIR [Concomitant]
     Indication: INFECTION PROPHYLAXIS
  9. CO-TRIMOXAZOLE [Concomitant]
     Indication: INFECTION PROPHYLAXIS
  10. DOXYCYCLINE [Concomitant]

REACTIONS (6)
  - Chronic allograft nephropathy [Recovered/Resolved]
  - Blood creatinine increased [Recovered/Resolved]
  - Glomerulonephritis [Recovered/Resolved]
  - Off label use [Unknown]
  - Transplant rejection [Recovered/Resolved]
  - Lymphopenia [Recovered/Resolved]
